FAERS Safety Report 13142970 (Version 4)
Quarter: 2018Q4

REPORT INFORMATION
  Report Type: Spontaneous
  Country: US (occurrence: US)
  Receive Date: 20170124
  Receipt Date: 20181221
  Transmission Date: 20190204
  Serious: No
  Sender: FDA-Public Use
  Company Number: US-PFIZER INC-2017028104

PATIENT
  Age: 61 Year
  Sex: Male
  Weight: 84 kg

DRUGS (3)
  1. LYRICA [Suspect]
     Active Substance: PREGABALIN
     Indication: RESTLESS LEGS SYNDROME
     Dosage: 400 MG, (50 MG, TAKES 8 OF THEM A DAY)
  2. LYRICA [Suspect]
     Active Substance: PREGABALIN
     Indication: DYSKINESIA
     Dosage: 200 MG, 2X/DAY, (200 MG, 1 CAPSULE TWO TIMES DAILY)
     Route: 048
     Dates: start: 20081229
  3. LYRICA [Suspect]
     Active Substance: PREGABALIN
     Dosage: 200 MG, 2X/DAY
     Dates: start: 20181212

REACTIONS (2)
  - Product use in unapproved indication [Unknown]
  - Throat lesion [Unknown]

NARRATIVE: CASE EVENT DATE: 20081229
